FAERS Safety Report 23455281 (Version 1)
Quarter: 2024Q1

REPORT INFORMATION
  Report Type: Spontaneous
  Country: FR (occurrence: FR)
  Receive Date: 20240130
  Receipt Date: 20240130
  Transmission Date: 20240410
  Serious: Yes (Other)
  Sender: FDA-Public Use
  Company Number: FR-AFSSAPS-AVNY2023000623

PATIENT
  Age: 15 Year
  Sex: Female
  Weight: 46 kg

DRUGS (1)
  1. TRAMADOL [Suspect]
     Active Substance: TRAMADOL\TRAMADOL HYDROCHLORIDE
     Indication: Product used for unknown indication
     Dosage: 750 MILLIGRAM
     Route: 048
     Dates: start: 20231109, end: 20231109

REACTIONS (6)
  - Drug use disorder [Unknown]
  - Respiratory depression [Recovered/Resolved]
  - Dizziness [Unknown]
  - Somnolence [Unknown]
  - Miosis [Unknown]
  - Dysuria [Unknown]

NARRATIVE: CASE EVENT DATE: 20231109
